FAERS Safety Report 7967373-4 (Version None)
Quarter: 2011Q4

REPORT INFORMATION
  Report Type: 
  Country: None (occurrence: None)
  Receive Date: 20111209
  Receipt Date: 20111125
  Transmission Date: 20120403
  Serious: Yes (Other)
  Sender: FDA-Public Use
  Company Number: JP-MYLANLABS-2011S1021232

PATIENT
  Age: 60 Year
  Sex: Female
  Weight: 40.5 kg

DRUGS (13)
  1. CARBOPLATIN [Suspect]
     Indication: NON-SMALL CELL LUNG CANCER
     Route: 041
     Dates: start: 20110916, end: 20110916
  2. CODEINE PHOSPHATE [Concomitant]
     Indication: PRODUCT USED FOR UNKNOWN INDICATION
     Route: 048
  3. ZOLPIDEM [Concomitant]
     Indication: INSOMNIA
     Route: 048
  4. CEFAZOLIN SODIUM [Concomitant]
     Indication: DIARRHOEA
     Route: 048
  5. ZOSYN [Suspect]
     Indication: PNEUMONIA
     Route: 041
     Dates: start: 20110906, end: 20110915
  6. ZOSYN [Suspect]
     Route: 041
     Dates: start: 20110922, end: 20110922
  7. MUCOSTA [Concomitant]
     Indication: RHEUMATOID ARTHRITIS
     Route: 048
     Dates: end: 20110926
  8. ZANTAC [Concomitant]
     Indication: NON-SMALL CELL LUNG CANCER
     Route: 041
     Dates: start: 20110916, end: 20110916
  9. LOXONIN [Concomitant]
     Indication: RHEUMATOID ARTHRITIS
     Route: 048
     Dates: end: 20110926
  10. ALINAMIN /00257802/ [Concomitant]
     Indication: PRODUCT USED FOR UNKNOWN INDICATION
     Route: 048
  11. DEXAMETHASONE SODIUM PHOSPHATE [Concomitant]
     Indication: NON-SMALL CELL LUNG CANCER
     Route: 041
     Dates: start: 20110916, end: 20110916
  12. TAXOL [Suspect]
     Indication: NON-SMALL CELL LUNG CANCER
     Route: 041
     Dates: start: 20110916, end: 20110916
  13. KYTRIL [Concomitant]
     Indication: NON-SMALL CELL LUNG CANCER
     Route: 041
     Dates: start: 20110916, end: 20110916

REACTIONS (1)
  - RENAL FAILURE ACUTE [None]
